FAERS Safety Report 6899676-9 (Version None)
Quarter: 2010Q3

REPORT INFORMATION
  Report Type: 
  Country: None (occurrence: None)
  Receive Date: 20100803
  Receipt Date: 20100722
  Transmission Date: 20110219
  Serious: Yes (Other)
  Sender: FDA-Public Use
  Company Number: US-RANBAXY-2010US-36175

PATIENT

DRUGS (1)
  1. CALAN [Suspect]
     Indication: HYPERTENSION
     Dosage: UNK, UNK
     Route: 065
     Dates: start: 20080301, end: 20081001

REACTIONS (4)
  - DYSARTHRIA [None]
  - FATIGUE [None]
  - MEDICATION ERROR [None]
  - WRONG TECHNIQUE IN DRUG USAGE PROCESS [None]
